FAERS Safety Report 5544043-3 (Version None)
Quarter: 2007Q4

REPORT INFORMATION
  Report Type: 
  Country: None (occurrence: None)
  Receive Date: 20071210
  Receipt Date: 20070103
  Transmission Date: 20080405
  Serious: No
  Sender: FDA-Public Use
  Company Number: US-AMGEN-KDL199518

PATIENT
  Sex: Male

DRUGS (2)
  1. ENBREL [Suspect]
     Indication: RHEUMATOID ARTHRITIS
     Route: 058
     Dates: start: 20061031
  2. METHOTREXATE [Concomitant]
     Route: 048
     Dates: start: 19950101

REACTIONS (9)
  - ARTHRALGIA [None]
  - BALANCE DISORDER [None]
  - DIZZINESS [None]
  - FATIGUE [None]
  - GAIT DISTURBANCE [None]
  - MUSCLE SPASMS [None]
  - MUSCLE TWITCHING [None]
  - MUSCULOSKELETAL PAIN [None]
  - PAIN IN EXTREMITY [None]
